FAERS Safety Report 20197435 (Version 2)
Quarter: 2022Q1

REPORT INFORMATION
  Report Type: Spontaneous
  Country: US (occurrence: US)
  Receive Date: 20211217
  Receipt Date: 20220218
  Transmission Date: 20220423
  Serious: Yes (Hospitalization, Other)
  Sender: FDA-Public Use
  Company Number: US-MLMSERVICE-20211126-3242798-1

PATIENT
  Age: 51 Year
  Sex: Female

DRUGS (1)
  1. SERTRALINE [Suspect]
     Active Substance: SERTRALINE HYDROCHLORIDE
     Indication: Depression
     Dosage: UNK
     Route: 065

REACTIONS (4)
  - Blood potassium decreased [Recovered/Resolved]
  - Blood bicarbonate decreased [Recovered/Resolved]
  - Colitis microscopic [Recovered/Resolved]
  - Colitis microscopic [Recovered/Resolved]
